FAERS Safety Report 5364349-0 (Version None)
Quarter: 2007Q2

REPORT INFORMATION
  Report Type: 
  Country: None (occurrence: None)
  Receive Date: 20070618
  Receipt Date: 20070608
  Transmission Date: 20071010
  Serious: Yes (Hospitalization)
  Sender: FDA-Public Use
  Company Number: 2007RL000235

PATIENT
  Age: 87 Year
  Sex: Male

DRUGS (5)
  1. PROPAFENONE HCL [Suspect]
     Indication: TACHYCARDIA
     Dosage: 300 MG;QD;PO
     Route: 048
     Dates: start: 20070131, end: 20070209
  2. CYPROTERONE ACETATE [Concomitant]
  3. ACETYLSALICYLIC ACID SRT [Concomitant]
  4. FUROSEMIDE [Concomitant]
  5. SPIRONOLACTONE [Concomitant]

REACTIONS (8)
  - BRADYARRHYTHMIA [None]
  - BUNDLE BRANCH BLOCK LEFT [None]
  - BUNDLE BRANCH BLOCK RIGHT [None]
  - FACIAL PALSY [None]
  - HEMIPARESIS [None]
  - NERVOUS SYSTEM DISORDER [None]
  - NODAL ARRHYTHMIA [None]
  - TRANSIENT ISCHAEMIC ATTACK [None]
